FAERS Safety Report 12731410 (Version 1)
Quarter: 2016Q3

REPORT INFORMATION
  Report Type: Spontaneous
  Country: US (occurrence: US)
  Receive Date: 20160909
  Receipt Date: 20160909
  Transmission Date: 20161109
  Serious: Yes (Life-Threatening, Hospitalization)
  Sender: FDA-Public Use
  Company Number: None

PATIENT
  Age: 53 Year
  Sex: Female
  Weight: 69.3 kg

DRUGS (7)
  1. HYDROMORPHONE [Concomitant]
     Active Substance: HYDROMORPHONE
  2. TIZANIDINE. [Concomitant]
     Active Substance: TIZANIDINE
  3. NABUMETONE. [Concomitant]
     Active Substance: NABUMETONE
  4. MAGNESIUM [Concomitant]
     Active Substance: MAGNESIUM
  5. ALENDRONATE SODIUM. [Suspect]
     Active Substance: ALENDRONATE SODIUM
     Indication: OSTEOPOROSIS
     Dosage: OTHER STRENGTH:;OTHER DOSE:;OTHER FREQUENCY:1 A WEEK;OTHER ROUTE:
     Route: 048
     Dates: start: 20160315, end: 20160818
  6. ASPIRIN. [Concomitant]
     Active Substance: ASPIRIN
  7. VITAMIN D [Suspect]
     Active Substance: CHOLECALCIFEROL

REACTIONS (4)
  - Deep vein thrombosis [None]
  - Syncope [None]
  - Pulmonary embolism [None]
  - Headache [None]

NARRATIVE: CASE EVENT DATE: 20160819
